FAERS Safety Report 21006979 (Version 2)
Quarter: 2022Q4

REPORT INFORMATION
  Report Type: Report from Study
  Country: US (occurrence: US)
  Receive Date: 20220625
  Receipt Date: 20221020
  Transmission Date: 20230113
  Serious: Yes (Hospitalization)
  Sender: FDA-Public Use
  Company Number: US-BRISTOL-MYERS SQUIBB COMPANY-2022-052210

PATIENT
  Age: 69 Year
  Sex: Female
  Weight: 131.54 kg

DRUGS (1)
  1. REVLIMID [Suspect]
     Active Substance: LENALIDOMIDE
     Indication: Plasma cell myeloma
     Dosage: FREQUENCY: TAKE 1 CAPSULE DAILY FOR 21 DAYS, THEN 7 DAYS OFF ?EXPIRY DATE: 30-SEP-2024
     Route: 048
     Dates: start: 20170403

REACTIONS (3)
  - Dyspnoea [Unknown]
  - Electrolyte imbalance [Unknown]
  - Diarrhoea [Recovering/Resolving]
